FAERS Safety Report 21056584 (Version 2)
Quarter: 2022Q3

REPORT INFORMATION
  Report Type: Spontaneous
  Country: FR (occurrence: FR)
  Receive Date: 20220708
  Receipt Date: 20220728
  Transmission Date: 20221026
  Serious: No
  Sender: FDA-Public Use
  Company Number: FR-MYLANLABS-2022M1050834

PATIENT
  Age: 1 Day
  Sex: Female

DRUGS (8)
  1. BOSENTAN [Suspect]
     Active Substance: BOSENTAN
     Indication: Pulmonary hypertension
     Dosage: 1 MILLIGRAM/KILOGRAM, BID, 1 MG/KG EVERY ?..
     Route: 065
  2. NITRIC OXIDE [Suspect]
     Active Substance: NITRIC OXIDE
     Indication: Pulmonary hypertension
     Dosage: UNK, 20PPM, RESPIRATORY (INHALATION)
     Route: 055
  3. ILOPROST [Suspect]
     Active Substance: ILOPROST
     Indication: Pulmonary hypertension
     Dosage: 1 MICROGRAM/KILOGRAM, Q4H, NEBULISED 1UG/KG???
     Route: 055
  4. ILOPROST [Suspect]
     Active Substance: ILOPROST
     Dosage: 1 UG/KG EVERY 3 HOURS
     Route: 055
  5. PORACTANT ALFA [Concomitant]
     Active Substance: PORACTANT ALFA
     Indication: Pulmonary hypertension
     Dosage: 200 MILLIGRAM/KILOGRAM
     Route: 065
  6. PORACTANT ALFA [Concomitant]
     Active Substance: PORACTANT ALFA
     Dosage: 100 MILLIGRAM/KILOGRAM
     Route: 065
  7. NOREPINEPHRINE [Concomitant]
     Active Substance: NOREPINEPHRINE
     Indication: Pulmonary hypertension
     Dosage: UNK, LATER, THE DOSE WAS TITRATED
     Route: 065
  8. HYDROCORTISONE [Concomitant]
     Active Substance: HYDROCORTISONE
     Indication: Pulmonary hypertension
     Dosage: UNK
     Route: 065

REACTIONS (2)
  - Off label use [Unknown]
  - No adverse event [Unknown]
